FAERS Safety Report 19456458 (Version 1)
Quarter: 2021Q2

REPORT INFORMATION
  Report Type: Spontaneous
  Country: US (occurrence: US)
  Receive Date: 20210624
  Receipt Date: 20210624
  Transmission Date: 20210717
  Serious: No
  Sender: FDA-Public Use
  Company Number: NVSC2021US142065

PATIENT
  Age: 88 Year
  Sex: Male

DRUGS (2)
  1. GAS?X [Suspect]
     Active Substance: DIMETHICONE
     Indication: FLATULENCE
     Dosage: UNK
     Route: 065
     Dates: start: 20210616, end: 20210618
  2. VOLTAREN [Suspect]
     Active Substance: DICLOFENAC SODIUM
     Indication: ARTHRITIS
     Dosage: UNK
     Route: 065
     Dates: start: 20210512, end: 20210620

REACTIONS (2)
  - Abdominal discomfort [Recovered/Resolved]
  - Drug ineffective [Recovered/Resolved]
